FAERS Safety Report 24826103 (Version 1)
Quarter: 2025Q1

REPORT INFORMATION
  Report Type: Spontaneous
  Country: US (occurrence: US)
  Receive Date: 20250109
  Receipt Date: 20250109
  Transmission Date: 20250408
  Serious: Yes (Other)
  Sender: PFIZER
  Company Number: US-PFIZER INC-PV202500000836

PATIENT
  Age: 12 Year
  Sex: Male

DRUGS (16)
  1. FLUCONAZOLE [Interacting]
     Active Substance: FLUCONAZOLE
     Indication: Mucosal inflammation
     Dosage: 200 MG, AT BEDTIME
  2. AMITRIPTYLINE [Interacting]
     Active Substance: AMITRIPTYLINE
     Indication: Neuralgia
     Dosage: 25 MG, AT BED TIME
  3. AMITRIPTYLINE [Interacting]
     Active Substance: AMITRIPTYLINE
     Dosage: 25 MG, 2X/DAY
  4. AMITRIPTYLINE [Interacting]
     Active Substance: AMITRIPTYLINE
     Dosage: 50 MG, 2X/DAY
  5. AMITRIPTYLINE [Interacting]
     Active Substance: AMITRIPTYLINE
     Dosage: 75 MG, 2X/DAY
  6. VINCRISTINE SULFATE [Concomitant]
     Active Substance: VINCRISTINE SULFATE
     Indication: Rhabdomyosarcoma
  7. CYCLOPHOSPHAMIDE [Concomitant]
     Active Substance: CYCLOPHOSPHAMIDE
     Indication: Rhabdomyosarcoma
  8. DACTINOMYCIN [Concomitant]
     Active Substance: DACTINOMYCIN
     Indication: Rhabdomyosarcoma
  9. ENALAPRIL [Concomitant]
     Active Substance: ENALAPRIL
     Indication: Rhabdomyosarcoma
     Dosage: 5 MG, 2X/DAY
     Route: 048
  10. GABAPENTIN [Concomitant]
     Active Substance: GABAPENTIN
     Indication: Rhabdomyosarcoma
     Dosage: 300 MG, 3X/DAY
  11. MORPHINE [Concomitant]
     Active Substance: MORPHINE
     Indication: Rhabdomyosarcoma
  12. OXYBUTYNIN [Concomitant]
     Active Substance: OXYBUTYNIN
     Indication: Rhabdomyosarcoma
     Dosage: 5 MG, EVERY EIGHT HOURS
  13. FILGRASTIM [Concomitant]
     Active Substance: FILGRASTIM
     Indication: Rhabdomyosarcoma
     Dosage: 300 UG, DAILY
     Route: 058
  14. BUPROPION [Concomitant]
     Active Substance: BUPROPION
     Indication: Depression
     Dosage: 75 MG, 2X/DAY
  15. DAPSONE [Concomitant]
     Active Substance: DAPSONE
     Indication: Antifungal prophylaxis
     Dosage: 100 MG, DAILY
  16. NITROFURANTOIN [Concomitant]
     Active Substance: NITROFURANTOIN
     Indication: Infection prophylaxis
     Dosage: 50 MG, AT BEDTIME

REACTIONS (2)
  - Drug interaction [Unknown]
  - Syncope [Unknown]
